FAERS Safety Report 9642501 (Version 1)
Quarter: 2013Q4

REPORT INFORMATION
  Report Type: Spontaneous
  Country: US (occurrence: None)
  Receive Date: 20131022
  Receipt Date: 20131022
  Transmission Date: 20140711
  Serious: Yes (Hospitalization)
  Sender: FDA-Public Use
  Company Number: 54973 AE # 1511

PATIENT
  Age: 8 Year
  Sex: Male

DRUGS (1)
  1. HYLAND^S COLD ^N COUGH 4 KIDS LIQUID [Suspect]
     Indication: NASOPHARYNGITIS
     Dosage: TSP
     Route: 048

REACTIONS (3)
  - Urticaria [None]
  - Blister [None]
  - Pyrexia [None]
